FAERS Safety Report 8122389-2 (Version None)
Quarter: 2012Q1

REPORT INFORMATION
  Report Type: 
  Country: None (occurrence: None)
  Receive Date: 20120208
  Receipt Date: 20120206
  Transmission Date: 20120608
  Serious: Yes (Congenital Anomaly)
  Sender: FDA-Public Use
  Company Number: US-GLAXOSMITHKLINE-A0963946A

PATIENT
  Sex: Male

DRUGS (2)
  1. LEXAPRO [Concomitant]
     Dates: start: 20060124
  2. PAXIL [Suspect]
     Indication: DEPRESSION
     Dosage: 20MG PER DAY
     Route: 064
     Dates: end: 20060124

REACTIONS (3)
  - ATRIAL SEPTAL DEFECT [None]
  - COARCTATION OF THE AORTA [None]
  - FOETAL EXPOSURE DURING PREGNANCY [None]
